FAERS Safety Report 5525168-5 (Version None)
Quarter: 2007Q4

REPORT INFORMATION
  Report Type: 
  Country: None (occurrence: None)
  Receive Date: 20071119
  Receipt Date: 20071111
  Transmission Date: 20080405
  Serious: Yes (Hospitalization)
  Sender: FDA-Public Use
  Company Number: 2007SP016438

PATIENT
  Age: 75 Year
  Sex: Female

DRUGS (3)
  1. PEG-INTRON [Suspect]
     Indication: HEPATITIS C
     Dosage: SC
     Route: 058
     Dates: start: 20061206, end: 20070801
  2. RIBAVIRIN [Suspect]
     Indication: HEPATITIS C
     Dosage: PO
     Route: 048
     Dates: start: 20061206, end: 20070801
  3. AMOXIL [Suspect]
     Indication: DENTAL OPERATION
     Dates: start: 20070801

REACTIONS (13)
  - ANAEMIA [None]
  - ANXIETY [None]
  - BLINDNESS TRANSIENT [None]
  - BLOOD PRESSURE INCREASED [None]
  - CONSTIPATION [None]
  - CYST [None]
  - DIVERTICULITIS [None]
  - DRY MOUTH [None]
  - GINGIVAL BLEEDING [None]
  - GINGIVAL RECESSION [None]
  - STAPHYLOCOCCAL INFECTION [None]
  - VISION BLURRED [None]
  - WHITE BLOOD CELL COUNT DECREASED [None]
